FAERS Safety Report 5499124-X (Version None)
Quarter: 2007Q4

REPORT INFORMATION
  Report Type: 
  Country: None (occurrence: None)
  Receive Date: 20071026
  Receipt Date: 20070605
  Transmission Date: 20080405
  Serious: No
  Sender: FDA-Public Use
  Company Number: A0654250A

PATIENT
  Sex: Female

DRUGS (7)
  1. ADVAIR DISKUS 100/50 [Suspect]
     Indication: ASTHMA
     Dosage: 1PUFF TWICE PER DAY
     Route: 055
     Dates: start: 20070417
  2. PROVENTIL [Concomitant]
  3. NASACORT AQ [Concomitant]
  4. MULTI-VITAMIN [Concomitant]
  5. ORTHO TRI-CYCLEN [Concomitant]
  6. TYLENOL (CAPLET) [Concomitant]
  7. PREVACID [Concomitant]

REACTIONS (5)
  - BALANCE DISORDER [None]
  - DRUG INEFFECTIVE [None]
  - HEADACHE [None]
  - NAUSEA [None]
  - SOMNOLENCE [None]
